FAERS Safety Report 11914117 (Version 3)
Quarter: 2019Q2

REPORT INFORMATION
  Report Type: Spontaneous
  Country: US (occurrence: US)
  Receive Date: 20160113
  Receipt Date: 20190621
  Transmission Date: 20190711
  Serious: Yes (Other)
  Sender: FDA-Public Use
  Company Number: US-TORRENT-00001097

PATIENT
  Sex: Female

DRUGS (1)
  1. ZOLPIDEM [Suspect]
     Active Substance: ZOLPIDEM\ZOLPIDEM TARTRATE
     Indication: PRODUCT USED FOR UNKNOWN INDICATION
     Dosage: ON THE NIGHT
     Dates: start: 20160107

REACTIONS (4)
  - Road traffic accident [Unknown]
  - Amnesia [Unknown]
  - Legal problem [Unknown]
  - Somnambulism [Unknown]

NARRATIVE: CASE EVENT DATE: 20160107
